FAERS Safety Report 6182191-8 (Version None)
Quarter: 2009Q2

REPORT INFORMATION
  Report Type: 
  Country: None (occurrence: None)
  Receive Date: 20090507
  Receipt Date: 20090428
  Transmission Date: 20091009
  Serious: Yes (Hospitalization)
  Sender: FDA-Public Use
  Company Number: PHEH2009US04271

PATIENT
  Sex: Female

DRUGS (2)
  1. TEGRETOL [Suspect]
     Dosage: 400 MG, UNK
  2. ISONIAZID [Interacting]
     Dosage: 300 MG, UNK

REACTIONS (3)
  - ABASIA [None]
  - LOSS OF CONSCIOUSNESS [None]
  - SYNCOPE [None]
